FAERS Safety Report 10589521 (Version 1)
Quarter: 2014Q4

REPORT INFORMATION
  Report Type: Report from Study
  Country: KR (occurrence: None)
  Receive Date: 20141114
  Receipt Date: 20141114
  Transmission Date: 20150529
  Serious: Yes (Other)
  Sender: FDA-Public Use
  Company Number: KR2014GSK015220

PATIENT
  Sex: Male

DRUGS (2)
  1. LAMIVUDINE (LAMIVUDINE) UNKNOWN [Suspect]
     Active Substance: LAMIVUDINE
     Indication: CHRONIC HEPATITIS B
  2. ADEFOVIR (ADEFOVIR DIPIVOXIL) UNKNOWN [Suspect]
     Active Substance: ADEFOVIR DIPIVOXIL

REACTIONS (3)
  - Genotype drug resistance test abnormal [None]
  - Drug resistance [None]
  - Viral infection [None]
